FAERS Safety Report 20481988 (Version 1)
Quarter: 2022Q1

REPORT INFORMATION
  Report Type: Spontaneous
  Country: US (occurrence: US)
  Receive Date: 20220216
  Receipt Date: 20220216
  Transmission Date: 20220423
  Serious: No
  Sender: FDA-Public Use
  Company Number: US-MAYNE PHARMA-2021MYN000644

PATIENT
  Sex: Female

DRUGS (1)
  1. DIAZEPAM [Suspect]
     Active Substance: DIAZEPAM
     Indication: Insomnia
     Dosage: 10 MG, QD
     Route: 048
     Dates: start: 20211111

REACTIONS (2)
  - Poor quality sleep [Unknown]
  - Restlessness [Unknown]

NARRATIVE: CASE EVENT DATE: 20211111
